FAERS Safety Report 15615512 (Version 2)
Quarter: 2019Q1

REPORT INFORMATION
  Report Type: Spontaneous
  Country: US (occurrence: US)
  Receive Date: 20181114
  Receipt Date: 20190228
  Transmission Date: 20190417
  Serious: No
  Sender: FDA-Public Use
  Company Number: US-ASTRAZENECA-2018SF37101

PATIENT
  Sex: Male
  Weight: 95.3 kg

DRUGS (5)
  1. BYDUREON [Suspect]
     Active Substance: EXENATIDE
     Dosage: 2 MG SC ONCE A WEEK, TOOK IT FOR 2 WEEKS
     Route: 058
     Dates: start: 201810
  2. BYDUREON BCISE [Suspect]
     Active Substance: EXENATIDE
     Route: 058
     Dates: start: 201810
  3. METFORMIN [Concomitant]
     Active Substance: METFORMIN HYDROCHLORIDE
     Dosage: TWO TIMES A DAY
     Route: 048
  4. BYETTA [Suspect]
     Active Substance: EXENATIDE
     Indication: TYPE 2 DIABETES MELLITUS
     Route: 058
  5. PRANDIN [Concomitant]
     Active Substance: REPAGLINIDE
     Dosage: 0.05 MG PO, UP TO 4 PER MEAL, AS NEEDED 4 TIMES A DAY
     Route: 048

REACTIONS (5)
  - Circumstance or information capable of leading to medication error [Unknown]
  - Glycosylated haemoglobin increased [Unknown]
  - Injection site pain [Unknown]
  - Arthritis [Unknown]
  - Injection site mass [Unknown]
